FAERS Safety Report 4829897-8 (Version None)
Quarter: 2005Q4

REPORT INFORMATION
  Report Type: 
  Country: None (occurrence: None)
  Receive Date: 20051115
  Receipt Date: 20051115
  Transmission Date: 20060501
  Serious: Yes (Other)
  Sender: FDA-Public Use
  Company Number: None

PATIENT
  Age: 33 Year
  Sex: Female
  Weight: 53.0709 kg

DRUGS (4)
  1. ORTHO EVRA [Suspect]
     Indication: CONTRACEPTION
     Dosage: 1 PATCH  WEEK  TRANSDERMA  (DURATION: APPROX 1 YEAR)
     Route: 062
     Dates: start: 20041023, end: 20051025
  2. EXCEDRIN MIGRAIN [Concomitant]
  3. TYLENOL (CAPLET) [Concomitant]
  4. BENADRYL [Concomitant]

REACTIONS (2)
  - HEADACHE [None]
  - MIDDLE INSOMNIA [None]
